FAERS Safety Report 18238977 (Version 1)
Quarter: 2020Q3

REPORT INFORMATION
  Report Type: Spontaneous
  Country: CN (occurrence: CN)
  Receive Date: 20200907
  Receipt Date: 20200907
  Transmission Date: 20201103
  Serious: Yes (Other)
  Sender: FDA-Public Use
  Company Number: CN-009507513-2008CHN014737

PATIENT
  Age: 66 Year
  Sex: Male
  Weight: 59.1 kg

DRUGS (3)
  1. INVANZ [Suspect]
     Active Substance: ERTAPENEM SODIUM
     Indication: ANTI-INFECTIVE THERAPY
     Dosage: 1G, IVGTT, QD, 5D, FROM 22 JUL 2020 TO 26 JUL 2020
     Route: 041
     Dates: start: 20200722, end: 20200726
  2. ZOPICLONE [Concomitant]
     Active Substance: ZOPICLONE
     Indication: SLEEP DISORDER
     Dosage: 7.5MG, QD, PO FROM 30 JUN 2020 TO 30 JUL 2020
     Route: 048
     Dates: start: 20200630, end: 20200730
  3. NIFEDIPINE. [Concomitant]
     Active Substance: NIFEDIPINE
     Indication: HYPERTENSION
     Dosage: 30MG, QD, PO, FROM 24 JUN 2020 TO 04 AUG 2020
     Route: 048
     Dates: start: 20200624, end: 20200804

REACTIONS (1)
  - Neurotoxicity [Recovering/Resolving]

NARRATIVE: CASE EVENT DATE: 20200727
